FAERS Safety Report 5002297-6 (Version None)
Quarter: 2006Q2

REPORT INFORMATION
  Report Type: 
  Country: None (occurrence: None)
  Receive Date: 20060511
  Receipt Date: 20060511
  Transmission Date: 20061013
  Serious: No
  Sender: FDA-Public Use
  Company Number: None

PATIENT
  Age: 70 Year
  Sex: Male

DRUGS (1)
  1. UROXATRAL [Suspect]
     Dosage: 10 MG DAILY PO
     Route: 048

REACTIONS (2)
  - CONDITION AGGRAVATED [None]
  - URINARY RETENTION [None]
